FAERS Safety Report 4333909-8 (Version None)
Quarter: 2004Q2

REPORT INFORMATION
  Report Type: 
  Country: None (occurrence: None)
  Receive Date: 20040402
  Receipt Date: 20040402
  Transmission Date: 20050107
  Serious: Yes (Hospitalization)
  Sender: FDA-Public Use
  Company Number: None

PATIENT
  Age: 51 Year
  Sex: Female
  Weight: 117.028 kg

DRUGS (9)
  1. GEMCITABINE [Suspect]
     Dosage: 1000 MG/M2
     Dates: start: 20040324
  2. CISPLATIN [Suspect]
     Dosage: 70 MG/M3
     Dates: start: 20040324
  3. PROTONIX [Concomitant]
  4. SYNTHROID [Concomitant]
  5. NORVASC [Concomitant]
  6. LISINOPRIL [Concomitant]
  7. PYRIDIUM [Concomitant]
  8. DITROPAN [Concomitant]
  9. COMPAZINE [Concomitant]

REACTIONS (6)
  - HYPOAESTHESIA [None]
  - ILIAC ARTERY STENOSIS [None]
  - LIVEDO RETICULARIS [None]
  - PAIN IN EXTREMITY [None]
  - PULSE ABSENT [None]
  - SKIN DISCOLOURATION [None]
